FAERS Safety Report 4841638-7 (Version None)
Quarter: 2005Q4

REPORT INFORMATION
  Report Type: 
  Country: None (occurrence: None)
  Receive Date: 20051130
  Receipt Date: 20050913
  Transmission Date: 20060501
  Serious: No
  Sender: FDA-Public Use
  Company Number: US-GLAXOSMITHKLINE-A0574100A

PATIENT
  Age: 30 Year
  Sex: Female

DRUGS (5)
  1. WELLBUTRIN XL [Suspect]
     Indication: DEPRESSION
     Dosage: 300MG PER DAY
     Route: 048
     Dates: start: 20050101
  2. TOPAMAX [Concomitant]
  3. PREVACID [Concomitant]
  4. RELPAX [Concomitant]
  5. KLONOPIN [Concomitant]

REACTIONS (1)
  - ALOPECIA [None]
